FAERS Safety Report 10674335 (Version 1)
Quarter: 2014Q4

REPORT INFORMATION
  Report Type: Spontaneous
  Country: US (occurrence: US)
  Receive Date: 20141224
  Receipt Date: 20141224
  Transmission Date: 20150529
  Serious: Yes (Hospitalization)
  Sender: FDA-Public Use
  Company Number: US-PFIZER INC-2014346731

PATIENT
  Age: 51 Year
  Sex: Male

DRUGS (1)
  1. BOSULIF [Suspect]
     Active Substance: BOSUTINIB MONOHYDRATE
     Indication: SOFT TISSUE SARCOMA
     Dosage: 300 MG, DAILY (3 TABLETS OF 100 MG)
     Route: 048
     Dates: start: 20140331

REACTIONS (4)
  - Diarrhoea [Recovering/Resolving]
  - Product use issue [Unknown]
  - Fatigue [Unknown]
  - Arthralgia [Unknown]

NARRATIVE: CASE EVENT DATE: 20140331
